FAERS Safety Report 18485439 (Version 4)
Quarter: 2021Q2

REPORT INFORMATION
  Report Type: Report from Study
  Country: CA (occurrence: CA)
  Receive Date: 20201110
  Receipt Date: 20210521
  Transmission Date: 20210717
  Serious: Yes (Other)
  Sender: FDA-Public Use
  Company Number: CA-JNJFOC-20201107582

PATIENT
  Age: 18 Year
  Sex: Female

DRUGS (2)
  1. REMICADE [Suspect]
     Active Substance: INFLIXIMAB
     Indication: COLITIS ULCERATIVE
     Dosage: EXPIRY DATE:JUL?2023
     Route: 042
     Dates: start: 20201021
  2. VANCOMYCIN [Concomitant]
     Active Substance: VANCOMYCIN
     Indication: CROHN^S DISEASE
     Route: 065
     Dates: start: 20210119

REACTIONS (1)
  - Clostridium difficile infection [Unknown]
